FAERS Safety Report 24318722 (Version 1)
Quarter: 2024Q3

REPORT INFORMATION
  Report Type: Report from Study
  Country: US (occurrence: US)
  Receive Date: 20240913
  Receipt Date: 20240913
  Transmission Date: 20241017
  Serious: Yes (Death)
  Sender: OTSUKA
  Company Number: US-OTSUKA-2024_025453

PATIENT
  Age: 64 Year
  Sex: Male

DRUGS (1)
  1. DEXTROMETHORPHAN HYDROBROMIDE\QUINIDINE SULFATE [Suspect]
     Active Substance: DEXTROMETHORPHAN HYDROBROMIDE\QUINIDINE SULFATE
     Indication: Product used for unknown indication
     Dosage: UNK (QUANTITY 60 FOR 30 DAY SUPPLY)
     Route: 065

REACTIONS (1)
  - Death [Fatal]

NARRATIVE: CASE EVENT DATE: 20231207
